FAERS Safety Report 9788752 (Version 3)
Quarter: 2014Q1

REPORT INFORMATION
  Report Type: Spontaneous
  Country: DE (occurrence: DE)
  Receive Date: 20131230
  Receipt Date: 20140115
  Transmission Date: 20141002
  Serious: Yes (Other)
  Sender: FDA-Public Use
  Company Number: DE-UCBSA-107501

PATIENT
  Age: 66 Year
  Sex: Male

DRUGS (4)
  1. NEUPRO [Suspect]
     Dosage: DRUG STRENGHT: NEUPRO 4 MG
     Dates: start: 2010
  2. NEUPRO [Suspect]
     Indication: PARKINSON^S DISEASE
     Dosage: DRUG STRENGHT: NEUPRO 4 MG
     Dates: start: 2010
  3. MADOPAR [Concomitant]
  4. AZILECT [Concomitant]
     Dosage: UNKNOWN

REACTIONS (4)
  - Hip surgery [Unknown]
  - Application site erythema [Unknown]
  - Application site pruritus [Unknown]
  - Drug effect decreased [Unknown]
